FAERS Safety Report 17951838 (Version 1)
Quarter: 2020Q2

REPORT INFORMATION
  Report Type: Report from Study
  Country: US (occurrence: US)
  Receive Date: 20200626
  Receipt Date: 20200626
  Transmission Date: 20200714
  Serious: No
  Sender: FDA-Public Use
  Company Number: NVSC2018US006413

PATIENT
  Sex: Female

DRUGS (8)
  1. KETOTIFEN [Suspect]
     Active Substance: KETOTIFEN
     Indication: PRODUCT USED FOR UNKNOWN INDICATION
     Route: 065
  2. PATANOL [Suspect]
     Active Substance: OLOPATADINE HYDROCHLORIDE
     Indication: PRODUCT USED FOR UNKNOWN INDICATION
     Route: 065
  3. CROMOLYN [Suspect]
     Active Substance: CROMOLYN
     Indication: PRODUCT USED FOR UNKNOWN INDICATION
     Dosage: UNK
     Route: 065
  4. OLOPATADINE HYDROCHLORIDE. [Suspect]
     Active Substance: OLOPATADINE HYDROCHLORIDE
     Indication: PRODUCT USED FOR UNKNOWN INDICATION
     Route: 065
  5. PATADAY [Suspect]
     Active Substance: OLOPATADINE HYDROCHLORIDE
     Indication: PRODUCT USED FOR UNKNOWN INDICATION
     Route: 065
  6. ZADITOR [Suspect]
     Active Substance: KETOTIFEN FUMARATE
     Indication: PRODUCT USED FOR UNKNOWN INDICATION
     Route: 065
  7. AZELASTINE. [Suspect]
     Active Substance: AZELASTINE HYDROCHLORIDE
     Indication: PRODUCT USED FOR UNKNOWN INDICATION
     Route: 065
  8. OLOPATADINE. [Suspect]
     Active Substance: OLOPATADINE
     Indication: PRODUCT USED FOR UNKNOWN INDICATION
     Route: 065

REACTIONS (1)
  - Treatment failure [Unknown]
